FAERS Safety Report 10539814 (Version 1)
Quarter: 2014Q4

REPORT INFORMATION
  Report Type: Report from Study
  Country: US (occurrence: US)
  Receive Date: 20141024
  Receipt Date: 20141024
  Transmission Date: 20150529
  Serious: Yes (Hospitalization)
  Sender: FDA-Public Use
  Company Number: US-BIOGENIDEC-2014BI108820

PATIENT
  Age: 35 Year
  Sex: Female

DRUGS (2)
  1. TYSABRI [Suspect]
     Active Substance: NATALIZUMAB
     Indication: MULTIPLE SCLEROSIS
     Route: 042
     Dates: start: 20140509
  2. TYSABRI [Suspect]
     Active Substance: NATALIZUMAB
     Indication: MULTIPLE SCLEROSIS
     Route: 042
     Dates: start: 20090317, end: 20131025

REACTIONS (9)
  - Muscular weakness [Recovered/Resolved]
  - Pelvic floor muscle weakness [Recovered/Resolved]
  - Nervous system disorder [Recovered/Resolved]
  - Asthma [Not Recovered/Not Resolved]
  - Paralysis [Recovered/Resolved]
  - Fatigue [Recovered/Resolved]
  - Urinary tract infection [Not Recovered/Not Resolved]
  - Intestinal prolapse [Recovered/Resolved]
  - Multiple sclerosis relapse [Recovered/Resolved]

NARRATIVE: CASE EVENT DATE: 20111002
